FAERS Safety Report 9538431 (Version 1)
Quarter: 2013Q3

REPORT INFORMATION
  Report Type: Spontaneous
  Country: JP (occurrence: JP)
  Receive Date: 20130920
  Receipt Date: 20130920
  Transmission Date: 20140515
  Serious: Yes (Hospitalization, Other)
  Sender: FDA-Public Use
  Company Number: JP-ACCORD-019484

PATIENT
  Age: 58 Year
  Sex: Female

DRUGS (2)
  1. DOCETAXEL [Suspect]
     Indication: ENDOMETRIAL CANCER STAGE III
     Dosage: ADMINISTRATED ON DAY 0
  2. CARBOPLATIN [Suspect]
     Indication: ENDOMETRIAL CANCER STAGE III
     Dosage: CARBOPLATIN (AUC = 5), ADMINISTRATED ON DAY 0, CBDCA

REACTIONS (3)
  - Pyomyositis [Recovered/Resolved]
  - Off label use [Unknown]
  - Streptococcal bacteraemia [Recovered/Resolved]
